FAERS Safety Report 6591373-2 (Version None)
Quarter: 2010Q1

REPORT INFORMATION
  Report Type: 
  Country: None (occurrence: None)
  Receive Date: 20100219
  Receipt Date: 20100209
  Transmission Date: 20100710
  Serious: Yes (Hospitalization, Other)
  Sender: FDA-Public Use
  Company Number: US-PFIZER INC-2010018983

PATIENT
  Sex: Female
  Weight: 64 kg

DRUGS (14)
  1. CHANTIX [Suspect]
     Dosage: UNK
     Dates: start: 20081201, end: 20090702
  2. CHANTIX [Suspect]
     Dosage: UNK
  3. GEODON [Suspect]
     Indication: BIPOLAR I DISORDER
     Dates: start: 20090701, end: 20090101
  4. SEROQUEL [Suspect]
     Indication: DEPRESSION
     Dates: start: 20090701
  5. VALIUM [Suspect]
     Dates: start: 20090701
  6. ATIVAN [Suspect]
  7. DARVOCET [Suspect]
  8. TEGRETOL [Suspect]
  9. PROPRANOLOL [Concomitant]
     Indication: TREMOR
  10. BENADRYL [Concomitant]
     Indication: HYPERSENSITIVITY
  11. WELLBUTRIN [Concomitant]
  12. DESYREL [Concomitant]
     Indication: SLEEP DISORDER
  13. SIMVASTATIN [Concomitant]
  14. LEXAPRO [Concomitant]

REACTIONS (8)
  - AMNESIA [None]
  - CATHETERISATION CARDIAC [None]
  - DEPRESSION [None]
  - EXTRAPYRAMIDAL DISORDER [None]
  - HYPONATRAEMIA [None]
  - MANIA [None]
  - PSYCHOTIC DISORDER [None]
  - TACHYCARDIA [None]
